FAERS Safety Report 25901143 (Version 2)
Quarter: 2025Q4

REPORT INFORMATION
  Report Type: Spontaneous
  Country: US (occurrence: US)
  Receive Date: 20251009
  Receipt Date: 20251230
  Transmission Date: 20260117
  Serious: Yes (Other)
  Sender: BAYER HEALTHCARE PHARMACEUTICALS INC.
  Company Number: US-BAYER-2025A132398

PATIENT
  Age: 23 Year
  Sex: Male

DRUGS (2)
  1. JIVI [Suspect]
     Active Substance: DAMOCTOCOG ALFA PEGOL
     Indication: Factor VIII deficiency
     Dosage: JIVI 3000/2300 IU, INFUSE 5300 UNITS (4770-5830) SLOW IV PUSH EVERY MONDAY AND THURSDAY AS PROPHYLAX
     Route: 042
     Dates: start: 202306
  2. JIVI [Suspect]
     Active Substance: DAMOCTOCOG ALFA PEGOL
     Indication: Prophylaxis
     Dosage: 3 UNKNOWN DOSE USED FOR LEFT ABDOMINAL BLEED
     Route: 042
     Dates: start: 202509

REACTIONS (1)
  - Intra-abdominal haemorrhage [Not Recovered/Not Resolved]

NARRATIVE: CASE EVENT DATE: 20250929
